FAERS Safety Report 6082140-7 (Version None)
Quarter: 2009Q1

REPORT INFORMATION
  Report Type: 
  Country: None (occurrence: None)
  Receive Date: 20090126
  Receipt Date: 20071212
  Transmission Date: 20090719
  Serious: Yes (Hospitalization)
  Sender: FDA-Public Use
  Company Number: WAES 0712USA04039

PATIENT
  Age: 11 Year
  Sex: Male

DRUGS (3)
  1. INVANZ [Suspect]
     Indication: PNEUMONIA
     Dosage: 15 MG/KG/BID/IV
     Route: 042
  2. ZANTAC [Concomitant]
  3. ALBUTEROL [Concomitant]

REACTIONS (1)
  - CONVULSION [None]
